FAERS Safety Report 9815742 (Version 1)
Quarter: 2014Q1

REPORT INFORMATION
  Report Type: Spontaneous
  Country: IT (occurrence: IT)
  Receive Date: 20140114
  Receipt Date: 20140114
  Transmission Date: 20141002
  Serious: Yes (Hospitalization)
  Sender: FDA-Public Use
  Company Number: IT-TEVA-454933ISR

PATIENT
  Age: 23 Year
  Sex: Male

DRUGS (4)
  1. OLANZAPINE [Suspect]
     Indication: INTENTIONAL SELF-INJURY
     Route: 048
     Dates: start: 20131220, end: 20131220
  2. LENDORMIN - 0,25 MG COMPRESSE - BOEHRINGER INGELHEIM IT [Suspect]
     Indication: INTENTIONAL SELF-INJURY
     Route: 048
     Dates: start: 20131220, end: 20131220
  3. XANAX - 0,50 MG COMPRESSE - 4PHARMA S.R.L. [Suspect]
     Indication: INTENTIONAL SELF-INJURY
     Route: 048
     Dates: start: 20131220, end: 20131220
  4. EFEXOR - 75 MG CAPSULE RIGIDE A RILASCIO PROLUNGATO [Suspect]
     Indication: INTENTIONAL SELF-INJURY
     Route: 048
     Dates: start: 20131220, end: 20131220

REACTIONS (4)
  - Headache [Recovering/Resolving]
  - Mydriasis [Recovering/Resolving]
  - Sopor [Recovering/Resolving]
  - Drug abuse [Recovering/Resolving]
